FAERS Safety Report 9500849 (Version 2)
Quarter: 2013Q3

REPORT INFORMATION
  Report Type: Report from Study
  Country: JP (occurrence: JP)
  Receive Date: 20130905
  Receipt Date: 20130905
  Transmission Date: 20140515
  Serious: Yes (Other)
  Sender: FDA-Public Use
  Company Number: JP-VERTEX PHARMACEUTICAL INC.-2012-020518

PATIENT
  Age: 54 Year
  Sex: Male

DRUGS (7)
  1. VX-950 (TELAPREVIR) [Suspect]
     Indication: CHRONIC HEPATITIS C
     Dosage: 2250 MG, QD
     Route: 048
     Dates: start: 20120217, end: 20120222
  2. REBETOL [Suspect]
     Indication: CHRONIC HEPATITIS C
     Dosage: 600 MG, QD
     Route: 048
     Dates: start: 20120217, end: 20120808
  3. PEGINTRON [Suspect]
     Indication: CHRONIC HEPATITIS C
     Dosage: 1.5 ?G/KG, QW
     Route: 058
     Dates: start: 20120217
  4. PEGINTRON [Suspect]
     Dosage: 0.86 ?G/KG, QW
     Route: 058
     Dates: start: 20120530, end: 20120612
  5. PEGINTRON [Suspect]
     Dosage: 1.19 ?G/KG, QW
     Route: 058
     Dates: start: 20120613, end: 20120731
  6. PEGINTRON [Suspect]
     Dosage: 0.86 ?G/KG, QW
     Route: 058
     Dates: start: 20120801
  7. DEPAKENE [Concomitant]
     Dosage: 400 MG, QD
     Route: 048

REACTIONS (1)
  - Neutrophil count decreased [Recovered/Resolved]
